FAERS Safety Report 24120976 (Version 3)
Quarter: 2024Q4

REPORT INFORMATION
  Report Type: Spontaneous
  Country: US (occurrence: US)
  Receive Date: 20240722
  Receipt Date: 20241125
  Transmission Date: 20250115
  Serious: No
  Sender: PFIZER
  Company Number: US-PFIZER INC-PV202400084552

PATIENT
  Age: 71 Year
  Sex: Female
  Weight: 119.3 kg

DRUGS (6)
  1. TUKYSA [Suspect]
     Active Substance: TUCATINIB
     Indication: Breast cancer metastatic
     Dosage: 150 MG, 2X/DAY, 1 TABLET IN THE MORNING AND 1 TABLET IN THE EVENING
     Route: 048
     Dates: start: 20240214
  2. TUKYSA [Suspect]
     Active Substance: TUCATINIB
     Dosage: 150 MG, 1X/DAY
     Route: 048
     Dates: start: 20240522
  3. TUKYSA [Suspect]
     Active Substance: TUCATINIB
     Dosage: 150 MG, 2X/DAY
  4. TUKYSA [Suspect]
     Active Substance: TUCATINIB
     Dosage: 150 MG, 1X/DAY
     Route: 048
     Dates: start: 20240626
  5. CAPECITABINE [Concomitant]
     Active Substance: CAPECITABINE
     Indication: Breast cancer metastatic
     Dosage: 1500 MG, 2X/DAY, (1 WEEK ON,  1 WEEK OFF.)
     Route: 048
     Dates: start: 20240430
  6. TRASTUZUMAB [Concomitant]
     Active Substance: TRASTUZUMAB
     Indication: Breast cancer metastatic
     Dosage: 672 MG, CYCLIC, Q21DAYS
     Dates: start: 20240430

REACTIONS (1)
  - Liver function test increased [Recovering/Resolving]

NARRATIVE: CASE EVENT DATE: 20240317
